FAERS Safety Report 6964066-7 (Version None)
Quarter: 2010Q3

REPORT INFORMATION
  Report Type: 
  Country: None (occurrence: None)
  Receive Date: 20100831
  Receipt Date: 20100816
  Transmission Date: 20110219
  Serious: Yes (Hospitalization)
  Sender: FDA-Public Use
  Company Number: IDA-00417

PATIENT
  Age: 58 Year
  Sex: Male

DRUGS (9)
  1. PROPRANOLOL [Suspect]
     Indication: PRODUCT USED FOR UNKNOWN INDICATION
     Dosage: 40 MG DAILY, ORAL FORMULATION
     Route: 048
  2. NEXIUM [Suspect]
     Indication: PRODUCT USED FOR UNKNOWN INDICATION
     Dosage: 40 MG BID, ORAL FORMULATION
     Route: 048
  3. CRESTOR [Suspect]
     Indication: PRODUCT USED FOR UNKNOWN INDICATION
     Dosage: 10 MG DAILY, ORAL FORMULATION: TABLET
     Route: 048
  4. TOPIRAMATE [Suspect]
     Indication: PRODUCT USED FOR UNKNOWN INDICATION
     Dosage: 50 MG BID, ORAL FORMULATION
     Route: 048
  5. ESCITALOPRAM [Suspect]
     Indication: PRODUCT USED FOR UNKNOWN INDICATION
     Dosage: 20 MG DAILY, ORAL FOMULATION
     Route: 048
     Dates: end: 20100315
  6. CREON [Suspect]
     Indication: PRODUCT USED FOR UNKNOWN INDICATION
     Dosage: 12000 IU, ORAL FORMULATION
     Route: 048
  7. DOGMATIL (SULPIRIDE) [Suspect]
     Indication: PRODUCT USED FOR UNKNOWN INDICATION
     Dosage: 50 MG BID, ORAL FORMULATION
     Route: 048
  8. ACETAMINOPHEN [Suspect]
     Indication: PRODUCT USED FOR UNKNOWN INDICATION
     Dosage: 1 G TID, ORAL FORMULATION
     Route: 048
  9. HUMALOG [Suspect]
     Indication: TYPE 1 DIABETES MELLITUS
     Dosage: 32 IU BID, SUBCUTANEOUS FORMULATION
     Route: 058

REACTIONS (3)
  - DECREASED APPETITE [None]
  - HEADACHE [None]
  - PANCREATITIS ACUTE [None]
